FAERS Safety Report 20585225 (Version 1)
Quarter: 2022Q1

REPORT INFORMATION
  Report Type: Spontaneous
  Country: US (occurrence: US)
  Receive Date: 20220312
  Receipt Date: 20220312
  Transmission Date: 20220424
  Serious: Yes (Other)
  Sender: FDA-Public Use
  Company Number: US-SAMSUNG BIOEPIS-SB-2022-05598

PATIENT
  Age: 73 Year
  Sex: Male

DRUGS (2)
  1. INFLIXIMAB [Suspect]
     Active Substance: INFLIXIMAB
     Indication: Large intestine polyp
     Dosage: UNKNOWN
     Route: 065
  2. MESALAMINE [Concomitant]
     Active Substance: MESALAMINE
     Indication: Large intestine polyp
     Dosage: UNKNOWN
     Route: 065

REACTIONS (3)
  - Proctocolectomy [Unknown]
  - Drug ineffective for unapproved indication [Unknown]
  - Off label use [Unknown]
